FAERS Safety Report 19814776 (Version 2)
Quarter: 2021Q4

REPORT INFORMATION
  Report Type: Spontaneous
  Country: US (occurrence: US)
  Receive Date: 20210909
  Receipt Date: 20211007
  Transmission Date: 20220303
  Serious: No
  Sender: FDA-Public Use
  Company Number: US-BAYER-2021-207766

PATIENT
  Age: 73 Year
  Sex: Female

DRUGS (1)
  1. CLIMARA [Suspect]
     Active Substance: ESTRADIOL
     Dosage: 1 DF, OW
     Route: 062

REACTIONS (6)
  - Product adhesion issue [None]
  - Menopausal symptoms [None]
  - Product physical issue [None]
  - Wrong technique in product usage process [None]
  - Hot flush [None]
  - Night sweats [None]
